FAERS Safety Report 5699232-4 (Version None)
Quarter: 2008Q2

REPORT INFORMATION
  Report Type: 
  Country: None (occurrence: None)
  Receive Date: 20080407
  Receipt Date: 20080407
  Transmission Date: 20081010
  Serious: Yes (Other)
  Sender: FDA-Public Use
  Company Number: None

PATIENT
  Age: 57 Year
  Sex: Male
  Weight: 90.7194 kg

DRUGS (2)
  1. SEROQUEL [Suspect]
     Indication: BIPOLAR DISORDER
     Dosage: FOUR DAILY PO
     Route: 048
     Dates: start: 20040415
  2. SEROQUEL [Suspect]
     Indication: INSOMNIA
     Dosage: FOUR DAILY PO
     Route: 048
     Dates: start: 20040415

REACTIONS (1)
  - HYPERGLYCAEMIA [None]
